FAERS Safety Report 5314502-7 (Version None)
Quarter: 2007Q2

REPORT INFORMATION
  Report Type: 
  Country: None (occurrence: None)
  Receive Date: 20070430
  Receipt Date: 20070430
  Transmission Date: 20071010
  Serious: Yes (Hospitalization)
  Sender: FDA-Public Use
  Company Number: None

PATIENT
  Age: 50 Year
  Sex: Female
  Weight: 68.9467 kg

DRUGS (15)
  1. BEVACIZUMAB 25 MG/ML GENENTECH [Suspect]
     Indication: PANCREATIC CARCINOMA METASTATIC
     Dosage: 700 MG DAY 1 OF CYCLE 1 IV
     Route: 042
     Dates: start: 20070411, end: 20070411
  2. GEMCITABINE HCL [Concomitant]
  3. OXALIPLATIN [Concomitant]
  4. ZOFRAN [Concomitant]
  5. DEXAMETHASONE 0.5MG TAB [Concomitant]
  6. ARANESP [Concomitant]
  7. MAGNESIUM SULFATE [Concomitant]
  8. CALCIUM GLUCONATE [Concomitant]
  9. PROZAC [Concomitant]
  10. MORPHINE SULFATE [Concomitant]
  11. FLAGYL [Concomitant]
  12. LEVAQUIN [Concomitant]
  13. REGLAN [Concomitant]
  14. CHEMO PROPHYLAXIS [Concomitant]
  15. PHENERGAN HCL [Concomitant]

REACTIONS (4)
  - CEREBROVASCULAR ACCIDENT [None]
  - FACIAL PALSY [None]
  - GAIT DISTURBANCE [None]
  - HEMIPARESIS [None]
